FAERS Safety Report 6268755-1 (Version None)
Quarter: 2009Q3

REPORT INFORMATION
  Report Type: 
  Country: None (occurrence: None)
  Receive Date: 20090713
  Receipt Date: 20090713
  Transmission Date: 20100115
  Serious: Yes (Other)
  Sender: FDA-Public Use
  Company Number: None

PATIENT
  Sex: Male
  Weight: 34.927 kg

DRUGS (1)
  1. CARDURA [Suspect]
     Indication: BENIGN PROSTATIC HYPERPLASIA
     Dosage: 4.0MG DAILY PO  (CONTINUOUS)
     Route: 048
     Dates: start: 20090628, end: 20090711

REACTIONS (2)
  - ASTHENIA [None]
  - DIZZINESS [None]
